FAERS Safety Report 6672647-3 (Version None)
Quarter: 2010Q2

REPORT INFORMATION
  Report Type: 
  Country: None (occurrence: None)
  Receive Date: 20100408
  Receipt Date: 20100329
  Transmission Date: 20101027
  Serious: No
  Sender: FDA-Public Use
  Company Number: US-B.I. PHARMACEUTICALS,INC./RIDGEFIELD-2010-BP-02840BP

PATIENT
  Age: 75 Year
  Sex: Male

DRUGS (10)
  1. SPIRIVA [Suspect]
     Indication: CHRONIC OBSTRUCTIVE PULMONARY DISEASE
     Dosage: 18 MCG
     Route: 055
     Dates: start: 20050801
  2. SPIRIVA [Suspect]
     Indication: CORONARY ARTERY BYPASS
  3. ALBUTEROL [Concomitant]
     Indication: MYOCARDIAL INFARCTION
     Dates: start: 19900101
  4. ALBUTEROL [Concomitant]
     Indication: INFLUENZA
  5. ZOCOR [Concomitant]
     Indication: MYOCARDIAL INFARCTION
     Dosage: 80 MG
     Dates: start: 20050101
  6. LISINOPRIL [Concomitant]
     Indication: MYOCARDIAL INFARCTION
     Dosage: 10 MG
     Dates: start: 20050101
  7. ASPIRIN [Concomitant]
     Indication: MYOCARDIAL INFARCTION
     Dosage: 81 MG
     Dates: start: 20050101
  8. VITAMIN TAB [Concomitant]
     Indication: MYOCARDIAL INFARCTION
     Dates: start: 20050101
  9. FLOMAX [Concomitant]
     Indication: PROSTATOMEGALY
     Dosage: 0.4 MG
     Dates: start: 20100101
  10. PROAIR HFA [Concomitant]

REACTIONS (1)
  - DRUG INEFFECTIVE [None]
